FAERS Safety Report 16667324 (Version 3)
Quarter: 2019Q3

REPORT INFORMATION
  Report Type: Spontaneous
  Country: US (occurrence: US)
  Receive Date: 20190805
  Receipt Date: 20190808
  Transmission Date: 20191004
  Serious: Yes (Other)
  Sender: FDA-Public Use
  Company Number: US-PFIZER INC-2019329470

PATIENT
  Age: 74 Year
  Sex: Female
  Weight: 68.49 kg

DRUGS (2)
  1. RELPAX [Suspect]
     Active Substance: ELETRIPTAN HYDROBROMIDE
     Indication: MIGRAINE
     Dosage: 40 MG, AS NEEDED [AS NEEDED FOR MIGRAINES WITH FOOD]
  2. IMITREX [Concomitant]
     Active Substance: SUMATRIPTAN SUCCINATE
     Dosage: UNK

REACTIONS (12)
  - Loss of consciousness [Recovered/Resolved]
  - Hypoaesthesia [Unknown]
  - Cerebrovascular accident [Not Recovered/Not Resolved]
  - Fall [Recovered/Resolved]
  - Muscle strain [Not Recovered/Not Resolved]
  - Neck pain [Unknown]
  - Wrist fracture [Not Recovered/Not Resolved]
  - Musculoskeletal stiffness [Not Recovered/Not Resolved]
  - Hemiplegia [Not Recovered/Not Resolved]
  - Balance disorder [Unknown]
  - Paralysis [Recovered/Resolved]
  - Back pain [Unknown]

NARRATIVE: CASE EVENT DATE: 20190328
